FAERS Safety Report 5610572-7 (Version None)
Quarter: 2008Q1

REPORT INFORMATION
  Report Type: 
  Country: None (occurrence: None)
  Receive Date: 20080131
  Receipt Date: 20080131
  Transmission Date: 20080703
  Serious: Yes (Disabling)
  Sender: FDA-Public Use
  Company Number: None

PATIENT
  Age: 65 Year
  Sex: Female

DRUGS (2)
  1. VISIPAQUE 320 [Suspect]
     Indication: TACHYCARDIA
     Dosage: 70 ML  X1  IV
     Route: 042
     Dates: start: 20070810, end: 20070810
  2. VISIPAQUE 320 [Suspect]
     Indication: TACHYCARDIA
     Dosage: 70 ML  X1  IV
     Route: 042
     Dates: start: 20070827, end: 20070827

REACTIONS (2)
  - GENERALISED ERYTHEMA [None]
  - RASH GENERALISED [None]
